FAERS Safety Report 21093198 (Version 9)
Quarter: 2025Q3

REPORT INFORMATION
  Report Type: Report from Study
  Country: US (occurrence: US)
  Receive Date: 20220718
  Receipt Date: 20250712
  Transmission Date: 20251021
  Serious: Yes (Other)
  Sender: TAKEDA
  Company Number: US-TAKEDA-2020TUS044393

PATIENT
  Sex: Female

DRUGS (4)
  1. HUMAN IMMUNOGLOBULIN G [Suspect]
     Active Substance: HUMAN IMMUNOGLOBULIN G
     Indication: Immunodeficiency common variable
  2. HUMAN IMMUNOGLOBULIN G [Suspect]
     Active Substance: HUMAN IMMUNOGLOBULIN G
     Indication: Primary immunodeficiency syndrome
  3. INFLUENZA VIRUS VACCINE [Suspect]
     Active Substance: INFLUENZA VIRUS VACCINE
     Indication: Product used for unknown indication
  4. UNSPECIFIED INGREDIENT [Suspect]
     Active Substance: UNSPECIFIED INGREDIENT
     Indication: Product used for unknown indication

REACTIONS (35)
  - Sinusitis bacterial [Unknown]
  - Diabetes mellitus [Unknown]
  - Pulmonary oedema [Unknown]
  - Gait disturbance [Unknown]
  - Joint injury [Unknown]
  - Gastric dilatation [Unknown]
  - Urinary tract infection [Unknown]
  - Alopecia [Recovered/Resolved]
  - Bronchitis [Unknown]
  - Cellulitis [Unknown]
  - Weight increased [Unknown]
  - Haemorrhoids [Unknown]
  - Oral fungal infection [Unknown]
  - Dysgeusia [Unknown]
  - Pain [Unknown]
  - Oedema [Unknown]
  - Headache [Unknown]
  - COVID-19 [Unknown]
  - Upper-airway cough syndrome [Unknown]
  - Impaired healing [Unknown]
  - Blood glucose fluctuation [Unknown]
  - Subcutaneous abscess [Unknown]
  - Skin wrinkling [Unknown]
  - Blood immunoglobulin A increased [Unknown]
  - Serum ferritin decreased [Unknown]
  - Sinus disorder [Unknown]
  - Inappropriate schedule of product administration [Unknown]
  - Multiple allergies [Unknown]
  - Immunoglobulins abnormal [Unknown]
  - Discomfort [Unknown]
  - Bronchospasm [Unknown]
  - Asthenia [Unknown]
  - Oedema peripheral [Unknown]
  - Anaemia [Unknown]
  - Cough [Unknown]
